FAERS Safety Report 6073898-1 (Version None)
Quarter: 2009Q1

REPORT INFORMATION
  Report Type: 
  Country: None (occurrence: None)
  Receive Date: 20090211
  Receipt Date: 20090120
  Transmission Date: 20090719
  Serious: Yes (Death)
  Sender: FDA-Public Use
  Company Number: GB-MERCK-0811GBR00031

PATIENT
  Age: 77 Year
  Sex: Male

DRUGS (10)
  1. DECADRON [Suspect]
     Indication: APPETITE DISORDER
     Route: 065
     Dates: start: 20070620
  2. DECADRON [Suspect]
     Indication: ASTHENIA
     Route: 065
     Dates: start: 20070620
  3. AMOXICILLIN [Concomitant]
     Route: 065
  4. INTERFERON (UNSPECIFIED) [Concomitant]
     Indication: RENAL CANCER
     Route: 065
     Dates: start: 20070620, end: 20070620
  5. MIDAZOLAM [Concomitant]
     Route: 065
  6. NYSTATIN [Concomitant]
     Indication: ORAL CANDIDIASIS
     Route: 048
  7. SUNITINIB MALATE [Concomitant]
     Indication: ANOREXIA
     Route: 065
     Dates: start: 20070701
  8. SUNITINIB MALATE [Concomitant]
     Indication: DIARRHOEA
     Route: 065
     Dates: start: 20070701
  9. SUNITINIB MALATE [Concomitant]
     Indication: FATIGUE
     Route: 065
     Dates: start: 20070701
  10. DIACETYLMORPHINE [Concomitant]
     Route: 065

REACTIONS (20)
  - AGITATION [None]
  - APPETITE DISORDER [None]
  - ASTHENIA [None]
  - CONFUSIONAL STATE [None]
  - DIARRHOEA [None]
  - DISCOMFORT [None]
  - FACE OEDEMA [None]
  - FATIGUE [None]
  - GENERAL PHYSICAL HEALTH DETERIORATION [None]
  - MUCOSAL ULCERATION [None]
  - ORAL PAIN [None]
  - PALLOR [None]
  - PETECHIAE [None]
  - PNEUMONIA ASPIRATION [None]
  - RASH [None]
  - REFUSAL OF TREATMENT BY PATIENT [None]
  - SOMNOLENCE [None]
  - URINARY INCONTINENCE [None]
  - URINE ODOUR ABNORMAL [None]
  - WEIGHT DECREASED [None]
